FAERS Safety Report 24286955 (Version 1)
Quarter: 2024Q3

REPORT INFORMATION
  Report Type: Spontaneous
  Country: US (occurrence: None)
  Receive Date: 20240904
  Receipt Date: 20240904
  Transmission Date: 20241016
  Serious: Yes (Hospitalization)
  Sender: Public
  Company Number: None

PATIENT
  Age: 61 Year
  Sex: Male
  Weight: 96.3 kg

DRUGS (1)
  1. TALQUETAMAB [Suspect]
     Active Substance: TALQUETAMAB
     Indication: Plasma cell myeloma
     Dosage: FREQUENCY : ONCE;?
     Route: 058
     Dates: start: 20240808, end: 20240808

REACTIONS (3)
  - Rash [None]
  - Trismus [None]
  - Pyrexia [None]

NARRATIVE: CASE EVENT DATE: 20240820
